FAERS Safety Report 4867570-0 (Version None)
Quarter: 2005Q4

REPORT INFORMATION
  Report Type: 
  Country: None (occurrence: None)
  Receive Date: 20051222
  Receipt Date: 20051215
  Transmission Date: 20060501
  Serious: Yes (Hospitalization, Other)
  Sender: FDA-Public Use
  Company Number: HQWYE455929APR05

PATIENT
  Age: 47 Year
  Sex: Female
  Weight: 48.58 kg

DRUGS (3)
  1. RAPAMUNE [Suspect]
     Indication: PROPHYLAXIS AGAINST TRANSPLANT REJECTION
     Dosage: UNKNOWN DOSE, TWICE DAILY, ORAL
     Route: 048
     Dates: start: 20050119
  2. TACROLIMUS (TACROLIMUS) [Concomitant]
  3. CORTICOSTEROID NOS (CORTICOSTEROID NOS) [Concomitant]

REACTIONS (12)
  - ATELECTASIS [None]
  - BLOOD CREATININE INCREASED [None]
  - BLOOD PRESSURE DECREASED [None]
  - CARDIOMEGALY [None]
  - COMPLICATIONS OF TRANSPLANTED KIDNEY [None]
  - GLOMERULAR VASCULAR DISORDER [None]
  - HAEMATURIA [None]
  - LUNG INFILTRATION [None]
  - OLIGURIA [None]
  - PLEURAL EFFUSION [None]
  - RENAL ISCHAEMIA [None]
  - RENAL TUBULAR DISORDER [None]
